FAERS Safety Report 8193067-9 (Version None)
Quarter: 2012Q1

REPORT INFORMATION
  Report Type: 
  Country: None (occurrence: None)
  Receive Date: 20120308
  Receipt Date: 20120228
  Transmission Date: 20120608
  Serious: Yes (Life-Threatening, Hospitalization)
  Sender: FDA-Public Use
  Company Number: FR-MPIJNJ-2012-01114

PATIENT

DRUGS (7)
  1. VELCADE [Suspect]
     Indication: MULTIPLE MYELOMA
     Dosage: 3.5 MG, CYCLIC
     Route: 042
     Dates: start: 20071001, end: 20071201
  2. DEXAMETHASONE [Concomitant]
     Dosage: 40 MG, UNK
  3. ALKERAN [Suspect]
     Indication: PRODUCT USED FOR UNKNOWN INDICATION
     Dosage: 400 MG, UNK
     Route: 065
     Dates: start: 20080212
  4. ALLOPURINOL [Concomitant]
     Dosage: 300 MG, UNK
  5. CLONAZEPAM [Concomitant]
     Indication: PARAESTHESIA
  6. GRANOCYTE 34 [Suspect]
     Indication: PRODUCT USED FOR UNKNOWN INDICATION
     Dosage: UNK
     Route: 065
     Dates: start: 20080101, end: 20080101
  7. GABAPENTIN [Concomitant]
     Dosage: 600 MG, UNK

REACTIONS (1)
  - T-CELL TYPE ACUTE LEUKAEMIA [None]
